FAERS Safety Report 14478476 (Version 3)
Quarter: 2018Q1

REPORT INFORMATION
  Report Type: Spontaneous
  Country: US (occurrence: US)
  Receive Date: 20180202
  Receipt Date: 20180328
  Transmission Date: 20180509
  Serious: Yes (Other)
  Sender: FDA-Public Use
  Company Number: US-009507513-1801USA009385

PATIENT
  Age: 29 Year
  Sex: Male

DRUGS (15)
  1. FENTANYL. [Suspect]
     Active Substance: FENTANYL
     Indication: ANALGESIC THERAPY
     Dosage: 250 MICROGRAM, ONCE (INTRAOPERATIVE)
     Route: 042
  2. FENTANYL. [Suspect]
     Active Substance: FENTANYL
     Dosage: 250 MICROGRAM, ONCE (POSTOPERATIVE)
     Route: 042
  3. CYCLOBENZAPRINE HYDROCHLORIDE. [Concomitant]
     Active Substance: CYCLOBENZAPRINE HYDROCHLORIDE
     Indication: MYALGIA
     Dosage: 10 MG THREE TIMES DAILY
  4. PRAZOSIN. [Concomitant]
     Active Substance: PRAZOSIN
     Indication: NIGHTMARE
     Dosage: 1 MG AT NIGHT
  5. SEVOFLURANE. [Concomitant]
     Active Substance: SEVOFLURANE
     Indication: MAINTENANCE OF ANAESTHESIA
     Dosage: UNK
  6. ONDANSETRON [Suspect]
     Active Substance: ONDANSETRON
     Indication: PROPHYLAXIS OF NAUSEA AND VOMITING
     Dosage: 4 MG, ONCE
     Route: 042
  7. REMERON [Suspect]
     Active Substance: MIRTAZAPINE
     Indication: ANTIDEPRESSANT THERAPY
     Dosage: 30 MG ONCE DAILY
     Route: 048
  8. MORPHINE SULFATE. [Suspect]
     Active Substance: MORPHINE SULFATE
     Dosage: 30 MG THREE TIMES DAILY
  9. CITALOPRAM [Suspect]
     Active Substance: CITALOPRAM HYDROBROMIDE
     Indication: ANTIDEPRESSANT THERAPY
     Dosage: 60 MG ONCE DAILY
  10. MORPHINE SULFATE. [Suspect]
     Active Substance: MORPHINE SULFATE
     Indication: PROCEDURAL PAIN
     Dosage: 30 MG THREE TIMES DAILY
  11. MORPHINE SULFATE. [Suspect]
     Active Substance: MORPHINE SULFATE
     Indication: ANALGESIC THERAPY
     Dosage: 20 MG, ONCE
     Route: 042
  12. MORPHINE SULFATE. [Suspect]
     Active Substance: MORPHINE SULFATE
     Dosage: 30 MG, ONCE
     Route: 048
  13. MORPHINE SULFATE. [Suspect]
     Active Substance: MORPHINE SULFATE
     Dosage: 30 MG, Q8H
  14. HYDROMORPHONE [Suspect]
     Active Substance: HYDROMORPHONE
     Indication: BREAKTHROUGH PAIN
     Dosage: UNK
  15. HYDROMORPHONE [Suspect]
     Active Substance: HYDROMORPHONE
     Indication: PROCEDURAL PAIN
     Dosage: 0.6 MG, UNK
     Route: 042

REACTIONS (1)
  - Serotonin syndrome [Recovered/Resolved]
